FAERS Safety Report 24179103 (Version 2)
Quarter: 2024Q3

REPORT INFORMATION
  Report Type: Report from Study
  Country: DE (occurrence: DE)
  Receive Date: 20240806
  Receipt Date: 20240808
  Transmission Date: 20241017
  Serious: Yes (Hospitalization)
  Sender: ABBVIE
  Company Number: DE-ABBVIE-5863956

PATIENT
  Age: 68 Year
  Sex: Male

DRUGS (4)
  1. CARBIDOPA\LEVODOPA [Suspect]
     Active Substance: CARBIDOPA\LEVODOPA
     Indication: Parkinson^s disease
     Route: 050
     Dates: start: 20210811
  2. CARBIDOPA\LEVODOPA [Suspect]
     Active Substance: CARBIDOPA\LEVODOPA
     Dosage: INCREASED FROM 4.7 TO 4.9 ML
     Route: 050
  3. BENSERAZIDE HYDROCHLORIDE\LEVODOPA [Concomitant]
     Active Substance: BENSERAZIDE HYDROCHLORIDE\LEVODOPA
     Indication: Product used for unknown indication
  4. ACYCLOVIR [Concomitant]
     Active Substance: ACYCLOVIR
     Indication: Antiviral treatment
     Dosage: 3X 400 MG/DAY I.V. OVER 7 DAYS
     Route: 042

REACTIONS (20)
  - Cognitive disorder [Not Recovered/Not Resolved]
  - Depression [Unknown]
  - Motor dysfunction [Not Recovered/Not Resolved]
  - Gait disturbance [Unknown]
  - Spinal osteoarthritis [Unknown]
  - Headache [Unknown]
  - Dementia [Unknown]
  - Rapid eye movement sleep behaviour disorder [Unknown]
  - On and off phenomenon [Unknown]
  - Orthostatic hypotension [Unknown]
  - Jealous delusion [Unknown]
  - Device dislocation [Unknown]
  - Device dislocation [Unknown]
  - Musculoskeletal disorder [Unknown]
  - Delirium [Unknown]
  - Post herpetic neuralgia [Unknown]
  - Tibia fracture [Unknown]
  - Dyskinesia [Unknown]
  - Reduced facial expression [Unknown]
  - Balance disorder [Unknown]

NARRATIVE: CASE EVENT DATE: 20210901
